FAERS Safety Report 9397098 (Version 2)
Quarter: 2013Q3

REPORT INFORMATION
  Report Type: Spontaneous
  Country: US (occurrence: US)
  Receive Date: 20130712
  Receipt Date: 20130808
  Transmission Date: 20140515
  Serious: No
  Sender: FDA-Public Use
  Company Number: US-PFIZER INC-2013203598

PATIENT
  Age: 75 Year
  Sex: Female
  Weight: 78.01 kg

DRUGS (3)
  1. LYRICA [Suspect]
     Indication: PAIN IN EXTREMITY
     Dosage: 50 MG, 1X/DAY
     Dates: start: 20130501, end: 201305
  2. AMLODIPINE BESILATE [Concomitant]
     Indication: HYPERTENSION
     Dosage: 10 MG, 1X/DAY
  3. CARBATROL [Concomitant]
     Indication: TRIGEMINAL NERVE DISORDER
     Dosage: 300 MG, 2X/DAY

REACTIONS (2)
  - Off label use [Unknown]
  - Dizziness [Recovered/Resolved]
